FAERS Safety Report 15265180 (Version 2)
Quarter: 2018Q4

REPORT INFORMATION
  Report Type: Spontaneous
  Country: US (occurrence: US)
  Receive Date: 20180810
  Receipt Date: 20181207
  Transmission Date: 20190204
  Serious: No
  Sender: FDA-Public Use
  Company Number: US-PFIZER INC-2018319617

PATIENT
  Age: 26 Year
  Sex: Female

DRUGS (1)
  1. GENOTROPIN [Suspect]
     Active Substance: SOMATROPIN
     Dosage: 0.2 MG, DAILY

REACTIONS (9)
  - Blood cholesterol increased [Unknown]
  - Blood thyroid stimulating hormone decreased [Unknown]
  - Vitamin D decreased [Unknown]
  - Insulin-like growth factor decreased [Unknown]
  - Cortisol decreased [Unknown]
  - Lymphocyte count increased [Unknown]
  - Carbon dioxide decreased [Unknown]
  - Blood corticotrophin decreased [Unknown]
  - Low density lipoprotein increased [Unknown]

NARRATIVE: CASE EVENT DATE: 20180801
